FAERS Safety Report 6546347-4 (Version None)
Quarter: 2010Q1

REPORT INFORMATION
  Report Type: 
  Country: None (occurrence: None)
  Receive Date: 20100119
  Receipt Date: 20100104
  Transmission Date: 20100710
  Serious: Yes (Other)
  Sender: FDA-Public Use
  Company Number: 2009AC000457

PATIENT
  Sex: Female

DRUGS (43)
  1. DIGOXIN [Suspect]
     Dosage: PO
     Route: 048
     Dates: start: 20000101
  2. HYDROCODONE [Concomitant]
  3. ADVAIR [Concomitant]
  4. FUROSEMIDE [Concomitant]
  5. SPIRONOLACTONE [Concomitant]
  6. LISINOPRIL [Concomitant]
  7. ZOLOFT [Concomitant]
  8. COREG [Concomitant]
  9. NASONEX [Concomitant]
  10. CARISOPRODOL [Concomitant]
  11. PROTONIX [Concomitant]
  12. CAPTOPRIL [Concomitant]
  13. PAXIL [Concomitant]
  14. VICODIN [Concomitant]
  15. VALIUM [Concomitant]
  16. NEXIUM [Concomitant]
  17. ZOCOR [Concomitant]
  18. HYDROCODONE [Concomitant]
  19. ROPINIROLE [Concomitant]
  20. REQUIP [Concomitant]
  21. TEMAZEPAM [Concomitant]
  22. PROMETHAZINE [Concomitant]
  23. CODEINE [Concomitant]
  24. AMOXICILLIN [Concomitant]
  25. PRILOSEC [Concomitant]
  26. SPIRONOLACTONE [Concomitant]
  27. FUROSEMIDE [Concomitant]
  28. CYCLOBENZAPRINE [Concomitant]
  29. NASONEX [Concomitant]
  30. CLOPIDOGREL [Concomitant]
  31. SPIRIVA [Concomitant]
  32. PRESTIGE SMART [Concomitant]
  33. HYDROXYZINE [Concomitant]
  34. TRAMADOL [Concomitant]
  35. PROTONIX [Concomitant]
  36. SERTRALINE HCL [Concomitant]
  37. CIMETIDINE [Concomitant]
  38. PAXIL [Concomitant]
  39. SALSALATE [Concomitant]
  40. DIAZEPAM [Concomitant]
  41. ACETAMINOPHEN [Concomitant]
  42. HYDROCODONE [Concomitant]
  43. TEMAZEPAM [Concomitant]

REACTIONS (19)
  - ATRIOVENTRICULAR BLOCK SECOND DEGREE [None]
  - CARDIAC FAILURE CONGESTIVE [None]
  - CARDIOACTIVE DRUG LEVEL DECREASED [None]
  - COUGH [None]
  - DIZZINESS [None]
  - ECONOMIC PROBLEM [None]
  - EJECTION FRACTION DECREASED [None]
  - FALL [None]
  - FOREIGN BODY [None]
  - GAIT DISTURBANCE [None]
  - HYPOTENSION [None]
  - LEFT VENTRICULAR HYPERTROPHY [None]
  - MULTIPLE INJURIES [None]
  - NAUSEA [None]
  - SURGERY [None]
  - THERAPEUTIC AGENT TOXICITY [None]
  - UNEVALUABLE EVENT [None]
  - VOMITING [None]
  - WEIGHT DECREASED [None]
